FAERS Safety Report 7506077-9 (Version None)
Quarter: 2011Q2

REPORT INFORMATION
  Report Type: 
  Country: None (occurrence: None)
  Receive Date: 20110526
  Receipt Date: 20110520
  Transmission Date: 20111010
  Serious: Yes (Other)
  Sender: FDA-Public Use
  Company Number: DE-PFIZER INC-2011074060

PATIENT
  Age: 51 Year
  Sex: Female

DRUGS (2)
  1. MEDROXYPROGESTERONE ACETATE [Suspect]
     Indication: OFF LABEL USE
     Dosage: UNK
     Route: 030
     Dates: start: 20100426
  2. MEDROXYPROGESTERONE ACETATE [Suspect]
     Indication: ENDOMETRIOSIS

REACTIONS (2)
  - OSTEOARTHRITIS [None]
  - INCORRECT ROUTE OF DRUG ADMINISTRATION [None]
